FAERS Safety Report 6136902-8 (Version None)
Quarter: 2009Q1

REPORT INFORMATION
  Report Type: 
  Country: None (occurrence: None)
  Receive Date: 20090330
  Receipt Date: 20090324
  Transmission Date: 20090719
  Serious: Yes (Other)
  Sender: FDA-Public Use
  Company Number: US-AVENTIS-200912356US

PATIENT
  Age: 29 Year
  Sex: Female
  Weight: 91 kg

DRUGS (8)
  1. LOVENOX [Suspect]
     Indication: PULMONARY EMBOLISM
     Route: 058
  2. HEPARIN NOS [Suspect]
     Dosage: DOSE: 5000 UNIT BOLUS DOSE FOLLOWED BY 1000 UNITS/HR
     Route: 040
  3. WARFARIN SODIUM [Concomitant]
     Dosage: DOSE: UNK
  4. TOPIRAMATE [Concomitant]
  5. LEVETIRACETAM [Concomitant]
     Route: 048
  6. EXTENDED RELEASE BUPROPION HYDROCHLORIDE [Concomitant]
     Route: 048
  7. DOCUSATE SODIUM [Concomitant]
     Route: 048
  8. ORAL CONTRACEPTIVE NOS [Concomitant]
     Dosage: DOSE: UNK
     Route: 048

REACTIONS (8)
  - BLOOD ALKALINE PHOSPHATASE INCREASED [None]
  - BLOOD BILIRUBIN INCREASED [None]
  - HEPATIC ENZYME INCREASED [None]
  - INTERNATIONAL NORMALISED RATIO INCREASED [None]
  - LIVER INJURY [None]
  - NAUSEA [None]
  - TRANSAMINASES INCREASED [None]
  - VOMITING [None]
